FAERS Safety Report 10203535 (Version 1)
Quarter: 2014Q2

REPORT INFORMATION
  Report Type: Spontaneous
  Country: US (occurrence: US)
  Receive Date: 20140529
  Receipt Date: 20140529
  Transmission Date: 20141212
  Serious: Yes (Hospitalization)
  Sender: FDA-Public Use
  Company Number: US-AMGEN INC.-USASP2014039072

PATIENT
  Age: 68 Year
  Sex: Female

DRUGS (1)
  1. ENBREL [Suspect]
     Indication: RHEUMATOID ARTHRITIS
     Dosage: 25 MG, 2 TIMES/WK
     Route: 065
     Dates: start: 20060601, end: 201405

REACTIONS (5)
  - Lower limb fracture [Recovered/Resolved]
  - Accident [Recovered/Resolved]
  - Knee arthroplasty [Recovered/Resolved]
  - Arthropathy [Not Recovered/Not Resolved]
  - Impaired healing [Not Recovered/Not Resolved]
